FAERS Safety Report 14262317 (Version 1)
Quarter: 2017Q4

REPORT INFORMATION
  Report Type: Report from Study
  Country: US (occurrence: US)
  Receive Date: 20171208
  Receipt Date: 20171208
  Transmission Date: 20180321
  Serious: No
  Sender: FDA-Public Use
  Company Number: US-KYOWAKIRIN-2017BKK000849

PATIENT

DRUGS (7)
  1. DEXAMETHASONE SODIUM PHOSPHATE. [Concomitant]
     Active Substance: DEXAMETHASONE SODIUM PHOSPHATE
     Indication: BREAST CANCER
     Dosage: 10 MG, 1X/WEEK
     Route: 042
     Dates: start: 20170120, end: 20170418
  2. PEGFILGRASTIM [Concomitant]
     Active Substance: PEGFILGRASTIM
     Indication: BREAST CANCER
     Dosage: 6 MG, 1X/WEEK
     Route: 058
     Dates: start: 20170120, end: 20170418
  3. GRANISETRON [Suspect]
     Active Substance: GRANISETRON
     Indication: PROPHYLAXIS OF NAUSEA AND VOMITING
     Dosage: 1 DF, 1X/WEEK, ON ARM
     Route: 061
     Dates: start: 20170120, end: 20170122
  4. DOXORUBICIN HCL [Concomitant]
     Active Substance: DOXORUBICIN HYDROCHLORIDE
     Indication: BREAST CANCER
     Dosage: 118 MG, 1X/WEEK
     Route: 042
     Dates: start: 20170120, end: 20170418
  5. FOSAPREPITANT [Concomitant]
     Active Substance: FOSAPREPITANT
     Indication: BREAST CANCER
     Dosage: 150 MG, 1X/WEEK
     Route: 042
     Dates: start: 20170120, end: 20170418
  6. CYCLOPHOSPHAMIDE. [Concomitant]
     Active Substance: CYCLOPHOSPHAMIDE
     Indication: BREAST CANCER
     Dosage: 1175 MG, 1X/WEEK
     Route: 042
     Dates: start: 20170120, end: 20170418
  7. PALONOSETRON. [Concomitant]
     Active Substance: PALONOSETRON HYDROCHLORIDE
     Indication: BREAST CANCER
     Dosage: 0.25 MG, 1X/WEEK
     Route: 042
     Dates: start: 20170120, end: 20170418

REACTIONS (3)
  - Inappropriate schedule of drug administration [Recovered/Resolved]
  - Application site warmth [Recovered/Resolved]
  - Application site pain [Recovered/Resolved]

NARRATIVE: CASE EVENT DATE: 20170120
